FAERS Safety Report 8395283-X (Version None)
Quarter: 2012Q2

REPORT INFORMATION
  Report Type: 
  Country: None (occurrence: None)
  Receive Date: 20120530
  Receipt Date: 20120528
  Transmission Date: 20120825
  Serious: Yes (Life-Threatening, Hospitalization, Other)
  Sender: FDA-Public Use
  Company Number: PHHY2012CA024972

PATIENT
  Sex: Female

DRUGS (4)
  1. CLOZARIL [Suspect]
     Indication: SCHIZOAFFECTIVE DISORDER
     Dosage: UNK
     Route: 048
     Dates: start: 20111115
  2. SEROQUEL [Concomitant]
     Dosage: 500 MG, QHS
  3. CLONAZEPAM [Concomitant]
     Dosage: 0.5 MG, BID
  4. SENOKOT [Concomitant]
     Indication: ABNORMAL BEHAVIOUR
     Dosage: 2 DF, BID
     Route: 048

REACTIONS (5)
  - SUICIDE ATTEMPT [None]
  - HYPOTENSION [None]
  - OVERDOSE [None]
  - ABDOMINAL HERNIA [None]
  - ABNORMAL BEHAVIOUR [None]
